FAERS Safety Report 5256449-0 (Version None)
Quarter: 2007Q1

REPORT INFORMATION
  Report Type: 
  Country: None (occurrence: None)
  Receive Date: 20070306
  Receipt Date: 20070301
  Transmission Date: 20070707
  Serious: Yes (Hospitalization, Other)
  Sender: FDA-Public Use
  Company Number: FR-ELI_LILLY_AND_COMPANY-FR200602001507

PATIENT
  Age: 36 Year
  Sex: Female
  Weight: 80 kg

DRUGS (7)
  1. ZYPREXA [Suspect]
     Indication: BIPOLAR DISORDER
     Dosage: 10 MG, DAILY (1/D)
     Route: 048
     Dates: start: 19980101
  2. ZYPREXA [Suspect]
     Dosage: 5 MG, OTHER
     Route: 048
  3. PROZAC [Concomitant]
     Indication: DEPRESSION
     Dosage: 1 D/F, OTHER
     Route: 048
  4. NOZINAN                                 /NET/ [Concomitant]
     Route: 048
  5. DEPAMIDE [Concomitant]
     Dosage: 2 D/F, DAILY (1/D)
     Route: 048
  6. PIPORTIL [Concomitant]
     Dosage: 1 D/F, DAILY (1/D)
     Route: 048
  7. ARTONIL [Concomitant]
     Dosage: 2 MG, DAILY (1/D)
     Route: 048

REACTIONS (9)
  - ANXIETY [None]
  - AUTOIMMUNE DISORDER [None]
  - DIZZINESS [None]
  - FALL [None]
  - GAIT DISTURBANCE [None]
  - MONOPLEGIA [None]
  - POLLAKIURIA [None]
  - SENSATION OF HEAVINESS [None]
  - VISUAL DISTURBANCE [None]
